FAERS Safety Report 5781588-5 (Version None)
Quarter: 2008Q2

REPORT INFORMATION
  Report Type: 
  Country: None (occurrence: None)
  Receive Date: 20080619
  Receipt Date: 20080612
  Transmission Date: 20081010
  Serious: Yes (Other)
  Sender: FDA-Public Use
  Company Number: PAR_02231_2008

PATIENT
  Age: 77 Year
  Sex: Female

DRUGS (1)
  1. IBUROFEN [Suspect]
     Indication: DRUG USE FOR UNKNOWN INDICATION
     Dosage: (DF)

REACTIONS (1)
  - GASTROINTESTINAL ULCER HAEMORRHAGE [None]
